FAERS Safety Report 21273169 (Version 2)
Quarter: 2022Q4

REPORT INFORMATION
  Report Type: Spontaneous
  Country: CA (occurrence: CA)
  Receive Date: 20220831
  Receipt Date: 20221003
  Transmission Date: 20230113
  Serious: Yes (Other)
  Sender: FDA-Public Use
  Company Number: CA-PFIZER INC-202201093454

PATIENT
  Age: 68 Year
  Sex: Female

DRUGS (5)
  1. ABRILADA [Suspect]
     Active Substance: ADALIMUMAB-AFZB
     Indication: Crohn^s disease
     Dosage: 40 MG, WEEKLY
     Route: 058
     Dates: start: 20220406
  2. ABRILADA [Suspect]
     Active Substance: ADALIMUMAB-AFZB
     Dosage: 40 MG, WEEKLY
     Route: 058
     Dates: start: 20220727
  3. ATORVASTATIN [Concomitant]
     Active Substance: ATORVASTATIN
     Dosage: 1 DF
  4. AURO CITALOPRAM [Concomitant]
     Dosage: 1 DF
  5. CELEBREX [Concomitant]
     Active Substance: CELECOXIB
     Dosage: 1 DF DOSAGE NOT AVAILABLE
     Route: 065

REACTIONS (2)
  - Condition aggravated [Unknown]
  - Illness [Unknown]

NARRATIVE: CASE EVENT DATE: 20220101
